FAERS Safety Report 20772828 (Version 1)
Quarter: 2022Q2

REPORT INFORMATION
  Report Type: Spontaneous
  Country: US (occurrence: US)
  Receive Date: 20220502
  Receipt Date: 20220502
  Transmission Date: 20220721
  Serious: No
  Sender: FDA-Public Use
  Company Number: US-BRISTOL-MYERS SQUIBB COMPANY-2022-017586

PATIENT
  Age: 74 Year
  Sex: Female
  Weight: 65 kg

DRUGS (1)
  1. POMALYST [Suspect]
     Active Substance: POMALIDOMIDE
     Indication: Plasma cell myeloma
     Dosage: QDX14 DAYS, 14 OFF
     Route: 048
     Dates: start: 202110

REACTIONS (2)
  - Alopecia [Unknown]
  - Arthralgia [Unknown]

NARRATIVE: CASE EVENT DATE: 20220305
